FAERS Safety Report 10203661 (Version 1)
Quarter: 2014Q2

REPORT INFORMATION
  Report Type: Spontaneous
  Country: KR (occurrence: None)
  Receive Date: 20140523
  Receipt Date: 20140523
  Transmission Date: 20141212
  Serious: Yes (Hospitalization)
  Sender: FDA-Public Use
  Company Number: ALLO20140015

PATIENT
  Age: 45 Year
  Sex: Male

DRUGS (1)
  1. ALLOPURINOL TABLETS (ALLOPURINOL) (TABLETS) [Suspect]
     Indication: HYPERURICAEMIA

REACTIONS (1)
  - Drug reaction with eosinophilia and systemic symptoms [None]
